FAERS Safety Report 6042163-0 (Version None)
Quarter: 2009Q1

REPORT INFORMATION
  Report Type: 
  Country: None (occurrence: None)
  Receive Date: 20090116
  Receipt Date: 20090107
  Transmission Date: 20090719
  Serious: Yes (Other)
  Sender: FDA-Public Use
  Company Number: PHEH2009US00567

PATIENT
  Sex: Male

DRUGS (3)
  1. MYFORTIC [Suspect]
     Dosage: UNK
     Dates: start: 20081001
  2. MAGNESIUM SULFATE [Concomitant]
  3. CELLCEPT [Concomitant]

REACTIONS (2)
  - DISEASE RECURRENCE [None]
  - SPEECH DISORDER [None]
